FAERS Safety Report 18710534 (Version 1)
Quarter: 2021Q1

REPORT INFORMATION
  Report Type: Spontaneous
  Country: US (occurrence: US)
  Receive Date: 20210107
  Receipt Date: 20210107
  Transmission Date: 20210419
  Serious: No
  Sender: FDA-Public Use
  Company Number: US-AUROBINDO-AUR-APL-2020-031867

PATIENT
  Sex: Female

DRUGS (1)
  1. MINOCYCLINE HYDROCHLORIDE EXTENDED?RELEASE TABLETS 45MG [Suspect]
     Active Substance: MINOCYCLINE HYDROCHLORIDE
     Indication: PRODUCT USED FOR UNKNOWN INDICATION
     Dosage: UNK
     Route: 065
     Dates: end: 20200601

REACTIONS (1)
  - Abdominal discomfort [Recovered/Resolved]
